FAERS Safety Report 7532075-5 (Version None)
Quarter: 2011Q2

REPORT INFORMATION
  Report Type: 
  Country: None (occurrence: None)
  Receive Date: 20110608
  Receipt Date: 20110602
  Transmission Date: 20111010
  Serious: No
  Sender: FDA-Public Use
  Company Number: US-PFIZER INC-2011050835

PATIENT
  Sex: Female
  Weight: 63 kg

DRUGS (5)
  1. FEMARA [Suspect]
     Indication: BREAST CANCER
     Dosage: 2.5 MG, UNK
     Dates: start: 20100201, end: 20110101
  2. AROMASIN [Suspect]
     Indication: ANTIOESTROGEN THERAPY
  3. VITAMIN TAB [Concomitant]
     Dosage: UNK
  4. AROMASIN [Suspect]
     Indication: BREAST CANCER
     Dosage: 25 MG, 1X/DAY
     Dates: start: 20110316
  5. FEMARA [Suspect]
     Indication: ANTIOESTROGEN THERAPY

REACTIONS (6)
  - DRY MOUTH [None]
  - DRY EYE [None]
  - HEADACHE [None]
  - APPETITE DISORDER [None]
  - THIRST [None]
  - DRUG INEFFECTIVE [None]
